FAERS Safety Report 5007703-9 (Version None)
Quarter: 2006Q2

REPORT INFORMATION
  Report Type: 
  Country: None (occurrence: None)
  Receive Date: 20060522
  Receipt Date: 20060511
  Transmission Date: 20061013
  Serious: Yes (Hospitalization)
  Sender: FDA-Public Use
  Company Number: 2006SE02756

PATIENT
  Age: 77 Year
  Sex: Male

DRUGS (3)
  1. CASODEX [Suspect]
     Indication: PROSTATE CANCER
     Route: 048
     Dates: start: 20051012, end: 20060201
  2. ALLOPURINOL [Concomitant]
  3. ATENOLOL COPYFARM [Concomitant]

REACTIONS (2)
  - BREAST PAIN [None]
  - NEPHRITIS INTERSTITIAL [None]
